FAERS Safety Report 14605092 (Version 3)
Quarter: 2018Q2

REPORT INFORMATION
  Report Type: Report from Study
  Country: US (occurrence: US)
  Receive Date: 20180306
  Receipt Date: 20180509
  Transmission Date: 20180711
  Serious: Yes (Death, Life-Threatening)
  Sender: FDA-Public Use
  Company Number: PHHO2017US012298

PATIENT
  Age: 31 Year
  Sex: Female

DRUGS (64)
  1. METHYLPREDNISOLONE. [Suspect]
     Active Substance: METHYLPREDNISOLONE
     Dosage: 60 MG, QD
     Route: 042
     Dates: start: 20170723
  2. ERGOCALCIFEROL. [Concomitant]
     Active Substance: ERGOCALCIFEROL
     Indication: VITAMIN D DEFICIENCY
     Dosage: 50000 U, QW
     Route: 048
     Dates: start: 20170630, end: 20170723
  3. LACTOBACILLUS RHAMNOSUS [Concomitant]
     Active Substance: LACTOBACILLUS RHAMNOSUS
     Indication: ACUTE GRAFT VERSUS HOST DISEASE
     Dosage: 2 DF, BID
     Route: 048
     Dates: start: 20170718, end: 20170727
  4. TIZANIDINE. [Concomitant]
     Active Substance: TIZANIDINE
     Indication: PAIN IN EXTREMITY
     Dosage: 2 MG, PRN
     Route: 048
     Dates: start: 20170722, end: 20170727
  5. URSODIOL. [Concomitant]
     Active Substance: URSODIOL
     Indication: PROPHYLAXIS
     Dosage: 300 MG, BID
     Route: 048
     Dates: start: 20170624, end: 20170727
  6. LOPERAMIDE [Concomitant]
     Active Substance: LOPERAMIDE
     Indication: DIARRHOEA
     Dosage: 2 MG, PRN
     Route: 048
     Dates: start: 20170627, end: 20170726
  7. INC424A [Suspect]
     Active Substance: RUXOLITINIB
     Indication: ACUTE GRAFT VERSUS HOST DISEASE
     Dosage: 5 MG, BID
     Route: 048
     Dates: start: 20170706
  8. TACROLIMUS. [Concomitant]
     Active Substance: TACROLIMUS
     Dosage: 0.5 MG, QD
     Route: 042
     Dates: start: 20170705, end: 20170706
  9. CALCIUM GLUCONATE. [Concomitant]
     Active Substance: CALCIUM GLUCONATE
     Indication: HYPOCALCAEMIA
     Dosage: 2 G, PRN
     Route: 042
     Dates: start: 20170711, end: 20170720
  10. GRANISETRON [Concomitant]
     Active Substance: GRANISETRON
     Indication: NAUSEA
     Dosage: 1 MG, BID
     Route: 042
     Dates: start: 20170625, end: 20170709
  11. BECLOMETHASONE [Concomitant]
     Active Substance: BECLOMETHASONE
     Indication: GRAFT VERSUS HOST DISEASE IN GASTROINTESTINAL TRACT
     Dosage: 1 MG, QD
     Route: 048
     Dates: start: 20170629
  12. MAGNESIUM SULFATE. [Concomitant]
     Active Substance: MAGNESIUM SULFATE
     Indication: PROPHYLAXIS
     Dosage: 2-4 GM, PRN
     Route: 042
     Dates: start: 20170630
  13. METHYLPREDNISOLONE. [Suspect]
     Active Substance: METHYLPREDNISOLONE
     Indication: ACUTE GRAFT VERSUS HOST DISEASE
     Dosage: 100 MG, QD
     Route: 042
     Dates: start: 20170626, end: 20170710
  14. SIROLIMUS. [Concomitant]
     Active Substance: SIROLIMUS
     Indication: ACUTE GRAFT VERSUS HOST DISEASE
     Dosage: 0.5 MG, QD
     Route: 048
     Dates: start: 20170718, end: 20170727
  15. TACROLIMUS. [Concomitant]
     Active Substance: TACROLIMUS
     Indication: PROPHYLAXIS AGAINST GRAFT VERSUS HOST DISEASE
     Dosage: 0.3 MG, QD
     Route: 042
     Dates: start: 20170629, end: 20170704
  16. TACROLIMUS. [Concomitant]
     Active Substance: TACROLIMUS
     Dosage: 0.5 MG, QD
     Route: 042
     Dates: start: 20170717, end: 20170717
  17. POTASSIUM CHLORIDE. [Concomitant]
     Active Substance: POTASSIUM CHLORIDE
     Indication: HYPOKALAEMIA
     Dosage: 20 MEQ, PRN
     Route: 042
     Dates: start: 20170712, end: 20170716
  18. LORAZEPAM. [Concomitant]
     Active Substance: LORAZEPAM
     Indication: NAUSEA
     Dosage: 0.5 MG, PRN
     Route: 048
     Dates: start: 20170714, end: 20170721
  19. ALBUTEROL. [Concomitant]
     Active Substance: ALBUTEROL
     Indication: PREMEDICATION
     Dosage: 2.5 MG, QMO
     Route: 055
     Dates: start: 20170623, end: 20170719
  20. POTASSIUM PHOSPHATE [Concomitant]
     Active Substance: POTASSIUM PHOSPHATE
     Indication: HYPOPHOSPHATAEMIA
     Dosage: 20 MMOL, PRN
     Route: 042
     Dates: start: 20170720, end: 20170727
  21. TACROLIMUS. [Concomitant]
     Active Substance: TACROLIMUS
     Dosage: 0.3 MG, QD
     Route: 042
     Dates: start: 20170718
  22. PANTOPRAZOLE [Concomitant]
     Active Substance: PANTOPRAZOLE
     Indication: GASTROOESOPHAGEAL REFLUX PROPHYLAXIS
     Dosage: 40 MG, BID
     Route: 042
     Dates: start: 20170624
  23. INSULIN [Concomitant]
     Active Substance: INSULIN NOS
     Dosage: 30 U, QD IN TPN
     Route: 042
     Dates: start: 20170714
  24. PENTAMIDINE [Concomitant]
     Active Substance: PENTAMIDINE
     Indication: INFECTION PROPHYLAXIS
     Dosage: 300 MG, QMO
     Route: 055
     Dates: start: 20170623, end: 20170719
  25. ACYCLOVIR. [Concomitant]
     Active Substance: ACYCLOVIR
     Indication: ANTIVIRAL PROPHYLAXIS
     Dosage: 390 MG, BID
     Route: 042
     Dates: start: 20170624
  26. MONTELUKAST [Concomitant]
     Active Substance: MONTELUKAST SODIUM
     Indication: ASTHMA
     Dosage: 10 MG, QD
     Route: 048
     Dates: end: 20170727
  27. LEVOFLOXACIN. [Concomitant]
     Active Substance: LEVOFLOXACIN
     Indication: BACTERAEMIA
  28. SIROLIMUS. [Suspect]
     Active Substance: SIROLIMUS
     Indication: ACUTE GRAFT VERSUS HOST DISEASE
     Dosage: 0.5 MG, QD
     Route: 048
     Dates: start: 20170718, end: 20170727
  29. METHYLPREDNISOLONE. [Suspect]
     Active Substance: METHYLPREDNISOLONE
     Dosage: 70 MG, QD
     Route: 042
     Dates: start: 20170720, end: 20170722
  30. TACROLIMUS. [Concomitant]
     Active Substance: TACROLIMUS
     Dosage: 0.6 MG, QD
     Route: 042
     Dates: start: 20170707, end: 20170716
  31. ALTEPLASE. [Concomitant]
     Active Substance: ALTEPLASE
     Indication: COMPLICATION ASSOCIATED WITH DEVICE
     Dosage: 2 MG, PRN
     Route: 042
     Dates: start: 20170708, end: 20170724
  32. ALPRAZOLAM. [Concomitant]
     Active Substance: ALPRAZOLAM
     Indication: ANXIETY
     Dosage: 250 MG, TID
     Route: 060
     Dates: start: 20170715, end: 20170725
  33. ZOLEDRONIC ACID. [Concomitant]
     Active Substance: ZOLEDRONIC ACID
     Indication: HYPERCALCAEMIA
     Dosage: 4 MG, QD
     Route: 042
     Dates: start: 20170717, end: 20170717
  34. CALCIUM CARBONATE. [Concomitant]
     Active Substance: CALCIUM CARBONATE
     Indication: HYPOCALCAEMIA
     Dosage: 500 MG, TID
     Route: 048
     Dates: start: 20170720, end: 20170726
  35. OCTREOTIDE. [Concomitant]
     Active Substance: OCTREOTIDE
     Indication: DIARRHOEA
     Dosage: 500 UG, TID
     Route: 042
     Dates: start: 20170721, end: 20170724
  36. ALBUMIN [Concomitant]
     Active Substance: ALBUMIN HUMAN
     Indication: HYPOALBUMINAEMIA
     Dosage: 25 G, PRN
     Route: 042
     Dates: start: 20170725
  37. FUROSEMIDE. [Concomitant]
     Active Substance: FUROSEMIDE
     Indication: GENERALISED OEDEMA
     Dosage: 20 MG, PRN
     Route: 042
     Dates: start: 20170725
  38. COLYTE [Concomitant]
     Active Substance: POLYETHYLENE GLYCOL 3350\POTASSIUM CHLORIDE\SODIUM BICARBONATE\SODIUM CHLORIDE\SODIUM SULFATE ANHYDROUS
     Indication: BOWEL PREPARATION
     Dosage: 1892 ML, ONCE/SINGLE
     Route: 048
     Dates: start: 20170725, end: 20170725
  39. MIDAZOLAM [Concomitant]
     Active Substance: MIDAZOLAM HYDROCHLORIDE
     Indication: PREMEDICATION
     Dosage: 1 MG, ONCE/SINGLE
     Route: 042
     Dates: start: 20170725, end: 20170725
  40. DICYCLOMINE [Concomitant]
     Active Substance: DICYCLOMINE HYDROCHLORIDE
     Indication: ABDOMINAL PAIN
     Dosage: 20 MG, PRN
     Route: 048
     Dates: start: 20170625, end: 20170708
  41. METHYLPREDNISOLONE. [Suspect]
     Active Substance: METHYLPREDNISOLONE
     Dosage: 80 MG, QD
     Route: 042
     Dates: start: 20170711, end: 20170719
  42. ENBREL [Suspect]
     Active Substance: ETANERCEPT
     Indication: ACUTE GRAFT VERSUS HOST DISEASE
     Dosage: 20 MG, UNK (MON AND THURS)
     Route: 058
     Dates: start: 20170720
  43. VEDOLIZUMAB [Suspect]
     Active Substance: VEDOLIZUMAB
     Dosage: 300 MG, ONCE/SINGLE
     Route: 042
     Dates: start: 20170713, end: 20170713
  44. BUDESONIDE. [Concomitant]
     Active Substance: BUDESONIDE
     Indication: GRAFT VERSUS HOST DISEASE IN GASTROINTESTINAL TRACT
     Dosage: 3 MG, BID
     Route: 048
     Dates: start: 20170629, end: 20170727
  45. INSULIN [Concomitant]
     Active Substance: INSULIN NOS
     Indication: DIABETES MELLITUS
     Dosage: 34 U, QD
     Route: 042
     Dates: start: 20170712, end: 20170713
  46. TPN [Concomitant]
     Active Substance: AMINO ACIDS\DEXTROSE\ELECTROLYTES NOS\SOYBEAN OIL
     Indication: ACUTE GRAFT VERSUS HOST DISEASE
     Dosage: UNK
     Route: 065
  47. POSACONAZOLE [Concomitant]
     Active Substance: POSACONAZOLE
     Indication: ANTIFUNGAL PROPHYLAXIS
     Dosage: 300 MG, QD
     Route: 042
     Dates: start: 20170624
  48. FENTANYL. [Concomitant]
     Active Substance: FENTANYL
     Indication: ABDOMINAL PAIN
     Dosage: PCA TITRATION, MCG, PRN
     Route: 042
     Dates: start: 20170626
  49. DIPHENOXYLATE/ATROPINE [Concomitant]
     Active Substance: ATROPINE\DIPHENOXYLATE
     Indication: DIARRHOEA
     Dosage: 1 DF, PRN (ONE TAB)
     Route: 048
     Dates: start: 20170630, end: 20170715
  50. VEDOLIZUMAB [Suspect]
     Active Substance: VEDOLIZUMAB
     Indication: ACUTE GRAFT VERSUS HOST DISEASE
     Dosage: 300 MG, ONCE/SINGLE
     Route: 042
     Dates: start: 20170629, end: 20170629
  51. ALTEPLASE. [Concomitant]
     Active Substance: ALTEPLASE
     Indication: THROMBOSIS
  52. ENOXAPARIN [Concomitant]
     Active Substance: ENOXAPARIN
     Indication: THROMBOSIS PROPHYLAXIS
     Dosage: 400 MG, QD
     Route: 058
     Dates: start: 20170624, end: 20170721
  53. INC424A [Suspect]
     Active Substance: RUXOLITINIB
     Dosage: 10 MG, BID
     Route: 048
     Dates: start: 20170711, end: 20170717
  54. ACETAMINOPHEN. [Concomitant]
     Active Substance: ACETAMINOPHEN
     Indication: PAIN IN EXTREMITY
     Dosage: 650 MG, PRN
     Route: 048
     Dates: start: 20170704, end: 20170727
  55. HYOSCYAMINE. [Concomitant]
     Active Substance: HYOSCYAMINE
     Indication: ABDOMINAL PAIN
     Dosage: 125 UG, PRN
     Route: 048
     Dates: start: 20170708, end: 20170712
  56. POTASSIUM CHLORIDE. [Concomitant]
     Active Substance: POTASSIUM CHLORIDE
     Indication: PROPHYLAXIS
     Dosage: 20 MEQ, BID
     Route: 048
     Dates: start: 20170711, end: 20170711
  57. PANTOPRAZOLE [Concomitant]
     Active Substance: PANTOPRAZOLE
     Dosage: 40 MG, BID
     Route: 048
     Dates: start: 20170712, end: 20170727
  58. CALCITROL [Concomitant]
     Active Substance: CALCITRIOL
     Indication: HYPOCALCAEMIA
     Dosage: 0.25 UG, QD
     Route: 048
     Dates: start: 20170720, end: 20170726
  59. CYCLOBENZAPRINE. [Concomitant]
     Active Substance: CYCLOBENZAPRINE
     Indication: PAIN IN EXTREMITY
     Dosage: 5 MG, PRN
     Route: 048
     Dates: start: 20170722, end: 20170725
  60. SERTRALINE [Concomitant]
     Active Substance: SERTRALINE HYDROCHLORIDE
     Indication: DEPRESSION
     Dosage: 100 MG, QD
     Route: 048
     Dates: start: 20170508, end: 20170727
  61. PROCHLORPERAZINE. [Concomitant]
     Active Substance: PROCHLORPERAZINE
     Indication: NAUSEA
     Dosage: 5 MG, Q6H
     Route: 042
     Dates: start: 20170625, end: 20170708
  62. FENTANYL. [Concomitant]
     Active Substance: FENTANYL
     Indication: PAIN IN EXTREMITY
     Dosage: 25 UG, (TIMES ONE)
     Route: 042
     Dates: start: 20170725, end: 20170725
  63. MAGNESIUM SULFATE. [Concomitant]
     Active Substance: MAGNESIUM SULFATE
     Indication: HYPOMAGNESAEMIA
  64. LEVOFLOXACIN. [Concomitant]
     Active Substance: LEVOFLOXACIN
     Indication: PROPHYLAXIS
     Dosage: 500 MG, QD
     Route: 042
     Dates: start: 20170624, end: 20170726

REACTIONS (4)
  - Septic shock [Fatal]
  - Hepatic failure [Fatal]
  - Staphylococcal infection [Fatal]
  - Acute kidney injury [Fatal]

NARRATIVE: CASE EVENT DATE: 20170726
